FAERS Safety Report 17647996 (Version 1)
Quarter: 2020Q2

REPORT INFORMATION
  Report Type: Spontaneous
  Country: CZ (occurrence: CZ)
  Receive Date: 20200408
  Receipt Date: 20200408
  Transmission Date: 20200713
  Serious: Yes (Other)
  Sender: FDA-Public Use
  Company Number: CZ-TEVA-2020-CZ-1219231

PATIENT
  Sex: Male

DRUGS (8)
  1. IRINOTECAN TEVA [Suspect]
     Active Substance: IRINOTECAN
     Indication: RECTOSIGMOID CANCER
  2. FLUOROURACIL. [Suspect]
     Active Substance: FLUOROURACIL
     Indication: RECTOSIGMOID CANCER
  3. IRINOTECAN TEVA [Suspect]
     Active Substance: IRINOTECAN
     Indication: METASTASES TO LIVER
     Route: 065
     Dates: start: 20171025, end: 20180226
  4. FOLINIC ACID TEVA [Suspect]
     Active Substance: LEUCOVORIN
     Indication: METASTASES TO LIVER
     Dates: start: 20171025, end: 20180226
  5. FOLINIC ACID TEVA [Suspect]
     Active Substance: LEUCOVORIN
     Indication: RECTOSIGMOID CANCER
  6. FLUOROURACIL. [Suspect]
     Active Substance: FLUOROURACIL
     Indication: METASTASES TO LIVER
     Route: 065
     Dates: start: 20171025, end: 20180226
  7. BEVACIZUMAB. [Suspect]
     Active Substance: BEVACIZUMAB
     Indication: METASTASES TO LIVER
     Route: 065
     Dates: start: 20171025, end: 20180226
  8. BEVACIZUMAB. [Suspect]
     Active Substance: BEVACIZUMAB
     Indication: RECTOSIGMOID CANCER

REACTIONS (1)
  - Palmar-plantar erythrodysaesthesia syndrome [Recovered/Resolved]
